FAERS Safety Report 10249213 (Version 3)
Quarter: 2020Q1

REPORT INFORMATION
  Report Type: Spontaneous
  Country: US (occurrence: US)
  Receive Date: 20140620
  Receipt Date: 20200327
  Transmission Date: 20200409
  Serious: Yes (Hospitalization, Other)
  Sender: FDA-Public Use
  Company Number: US-SA-2014SA072258

PATIENT
  Age: 51 Year
  Sex: Male
  Weight: 73.3 kg

DRUGS (1)
  1. CEREZYME [Suspect]
     Active Substance: IMIGLUCERASE
     Indication: GAUCHER^S DISEASE
     Dosage: 60.02 MG/KG,QOW
     Route: 042
     Dates: start: 2000, end: 2018

REACTIONS (7)
  - Joint dislocation [Not Recovered/Not Resolved]
  - Gastrostomy [Unknown]
  - Hypertension [Not Recovered/Not Resolved]
  - Parkinson^s disease [Unknown]
  - Disease progression [Unknown]
  - Gaucher^s disease [Unknown]
  - Parkinson^s disease [Unknown]

NARRATIVE: CASE EVENT DATE: 2011
